FAERS Safety Report 5760534-4 (Version None)
Quarter: 2008Q2

REPORT INFORMATION
  Report Type: 
  Country: None (occurrence: None)
  Receive Date: 20080602
  Receipt Date: 20080527
  Transmission Date: 20081010
  Serious: Yes (Death)
  Sender: FDA-Public Use
  Company Number: 2008BI011390

PATIENT
  Age: 52 Year
  Sex: Female

DRUGS (2)
  1. TYSABRI [Suspect]
     Indication: MULTIPLE SCLEROSIS
     Dosage: 300 MG; QM; IV
     Route: 042
     Dates: start: 20041228, end: 20071120
  2. SOLU-MEDROL [Concomitant]

REACTIONS (4)
  - DISEASE COMPLICATION [None]
  - DRUG INEFFECTIVE [None]
  - MULTIPLE SCLEROSIS [None]
  - RESPIRATORY FAILURE [None]
